FAERS Safety Report 16535815 (Version 3)
Quarter: 2019Q4

REPORT INFORMATION
  Report Type: Report from Study
  Country: None (occurrence: BE)
  Receive Date: 20190705
  Receipt Date: 20191022
  Transmission Date: 20200122
  Serious: Yes (Other)
  Sender: FDA-Public Use
  Company Number: BE-ABBVIE-18S-013-2448328-00

PATIENT
  Age: 66 Year
  Sex: Male

DRUGS (14)
  1. DUODOPA [Suspect]
     Active Substance: CARBIDOPA\LEVODOPA
     Indication: PARKINSON^S DISEASE
     Dosage: MD= 3.5ML CD= 1.5ML/HR DURING 16HRS  ED= 1ML
     Route: 050
     Dates: start: 20170612, end: 20170629
  2. DUODOPA [Suspect]
     Active Substance: CARBIDOPA\LEVODOPA
     Dosage: MD= 3.5ML CD= 2.7ML/HR DURING 16HRS ED= 2ML
     Route: 050
     Dates: start: 20180824, end: 20181005
  3. DUODOPA [Suspect]
     Active Substance: CARBIDOPA\LEVODOPA
     Dosage: MD=3.5ML, CD=2.5ML/HR DURING 16HRS, ED=2ML
     Route: 050
     Dates: start: 20191017
  4. XADAGO [Suspect]
     Active Substance: SAFINAMIDE MESYLATE
     Route: 065
  5. DUODOPA [Suspect]
     Active Substance: CARBIDOPA\LEVODOPA
     Dosage: MD=3.5ML, CD=2.6ML/HR DURING 16HRS, ED=2ML
     Route: 050
     Dates: start: 20190917, end: 20191017
  6. DUODOPA [Suspect]
     Active Substance: CARBIDOPA\LEVODOPA
     Dosage: MD= 3.5ML CD= 2.9 ML/HR DURING 16HRS ED= 2ML
     Route: 050
     Dates: start: 20190123, end: 20190703
  7. XADAGO [Suspect]
     Active Substance: SAFINAMIDE MESYLATE
     Indication: PRODUCT USED FOR UNKNOWN INDICATION
     Route: 065
  8. DUODOPA [Suspect]
     Active Substance: CARBIDOPA\LEVODOPA
     Dosage: MD= 3.5ML??CD= 2.7ML/HR DURING 16HRS ??ED= 2ML
     Route: 050
     Dates: start: 20180502, end: 20180802
  9. DUODOPA [Suspect]
     Active Substance: CARBIDOPA\LEVODOPA
     Dosage: MD= 3.5ML CD= 2.8ML/HR DURING 16HRS ED= 2ML
     Route: 050
     Dates: start: 20181005, end: 20190123
  10. DUODOPA [Suspect]
     Active Substance: CARBIDOPA\LEVODOPA
     Dosage: DOSES CONTINUOUSLY MONITORED AND ADAPTED
     Route: 050
     Dates: start: 20170629, end: 20180802
  11. DUODOPA [Suspect]
     Active Substance: CARBIDOPA\LEVODOPA
     Dosage: MD= 3.5ML CD= 2.5ML/HR DURING 16HRS ED= 2ML
     Route: 050
     Dates: start: 20180810, end: 20180824
  12. DUODOPA [Suspect]
     Active Substance: CARBIDOPA\LEVODOPA
     Dosage: MD=3.5ML, CD=2.7ML/HR DURING 16HRS, ED=2ML
     Route: 050
     Dates: start: 20190703, end: 20190917
  13. DUODOPA [Suspect]
     Active Substance: CARBIDOPA\LEVODOPA
     Dosage: MD= 3.5ML??CD= 2.6ML/HR DURING 16HRS ??ED= 2ML
     Route: 050
     Dates: start: 20180802, end: 20180810
  14. AMLODIPINE [Concomitant]
     Active Substance: AMLODIPINE BESYLATE
     Indication: PRODUCT USED FOR UNKNOWN INDICATION

REACTIONS (19)
  - Prostate cancer [Not Recovered/Not Resolved]
  - Hypotension [Unknown]
  - Fatigue [Not Recovered/Not Resolved]
  - Parkinsonian gait [Recovering/Resolving]
  - Polyneuropathy [Unknown]
  - Weight decreased [Unknown]
  - Decreased appetite [Unknown]
  - Hypertension [Unknown]
  - Fall [Recovered/Resolved]
  - Asthenia [Not Recovered/Not Resolved]
  - Dyskinesia [Not Recovered/Not Resolved]
  - Mobility decreased [Unknown]
  - Blood creatinine increased [Unknown]
  - Apathy [Unknown]
  - Fall [Unknown]
  - Freezing phenomenon [Recovering/Resolving]
  - Balance disorder [Not Recovered/Not Resolved]
  - Posture abnormal [Not Recovered/Not Resolved]
  - Labile blood pressure [Unknown]

NARRATIVE: CASE EVENT DATE: 201807
